FAERS Safety Report 8580567-2 (Version None)
Quarter: 2012Q3

REPORT INFORMATION
  Report Type: 
  Country: None (occurrence: None)
  Receive Date: 20120808
  Receipt Date: 20120508
  Transmission Date: 20120928
  Serious: Yes (Other)
  Sender: FDA-Public Use
  Company Number: PHEH2012US007263

PATIENT
  Sex: Female

DRUGS (10)
  1. LEVOTHYROXINE SODIUM [Concomitant]
     Dosage: 50 UG, UNK
  2. SIMVASTATIN [Concomitant]
     Dosage: 5 MG, UNK
  3. ALPRAZOLAM [Concomitant]
     Dosage: 0.25 MG, UNK
  4. NITROSTAT [Concomitant]
     Dosage: 0.4 MG, UNK
  5. PAROXETINE HCL [Concomitant]
     Dosage: 12.5 MG, UNK
  6. CARVEDILOL [Concomitant]
     Dosage: 3.125 MG, UNK
  7. TASIGNA [Suspect]
     Dosage: 1 DF, BID
     Route: 048
  8. AMLODIPINE [Concomitant]
     Dosage: 2.5 MG, UNK
  9. HYDROCHLOROTHIAZIDE [Concomitant]
     Dosage: 12.5 MG, UNK
  10. ASPIRIN [Concomitant]
     Dosage: 81 MG, UNK

REACTIONS (3)
  - ATRIOVENTRICULAR BLOCK [None]
  - MYOCARDIAL INFARCTION [None]
  - FATIGUE [None]
